FAERS Safety Report 17722836 (Version 6)
Quarter: 2024Q4

REPORT INFORMATION
  Report Type: Spontaneous
  Country: CA (occurrence: CA)
  Receive Date: 20200429
  Receipt Date: 20241105
  Transmission Date: 20250114
  Serious: Yes (Other)
  Sender: BAUSCH AND LOMB
  Company Number: CA-BAUSCH-BL-2020-012539

PATIENT
  Age: 57 Year
  Sex: Female

DRUGS (72)
  1. BUPROPION [Suspect]
     Active Substance: BUPROPION
     Indication: Anxiety
     Route: 048
  2. BUPROPION [Suspect]
     Active Substance: BUPROPION
     Route: 048
  3. BUPROPION [Suspect]
     Active Substance: BUPROPION
     Route: 048
  4. BUPROPION [Suspect]
     Active Substance: BUPROPION
     Route: 048
  5. BUPROPION [Suspect]
     Active Substance: BUPROPION
     Route: 048
  6. BUPROPION [Suspect]
     Active Substance: BUPROPION
     Route: 048
  7. BUPROPION [Suspect]
     Active Substance: BUPROPION
     Route: 048
  8. CANDESARTAN CILEXETIL [Suspect]
     Active Substance: CANDESARTAN CILEXETIL
     Indication: Hypertension
     Route: 065
  9. CANDESARTAN CILEXETIL [Suspect]
     Active Substance: CANDESARTAN CILEXETIL
     Route: 048
  10. CANDESARTAN CILEXETIL [Suspect]
     Active Substance: CANDESARTAN CILEXETIL
     Route: 048
  11. CANDESARTAN CILEXETIL [Suspect]
     Active Substance: CANDESARTAN CILEXETIL
     Route: 048
  12. CANDESARTAN CILEXETIL [Suspect]
     Active Substance: CANDESARTAN CILEXETIL
     Route: 048
  13. CANDESARTAN CILEXETIL [Suspect]
     Active Substance: CANDESARTAN CILEXETIL
     Route: 065
  14. CANDESARTAN CILEXETIL [Suspect]
     Active Substance: CANDESARTAN CILEXETIL
     Route: 065
  15. CANDESARTAN CILEXETIL [Suspect]
     Active Substance: CANDESARTAN CILEXETIL
     Route: 048
  16. CANDESARTAN CILEXETIL [Suspect]
     Active Substance: CANDESARTAN CILEXETIL
     Route: 065
  17. CLONAZEPAM [Suspect]
     Active Substance: CLONAZEPAM
     Indication: Sleep disorder
     Route: 048
  18. CLONAZEPAM [Suspect]
     Active Substance: CLONAZEPAM
     Route: 048
  19. CLONAZEPAM [Suspect]
     Active Substance: CLONAZEPAM
     Route: 048
  20. OMALIZUMAB [Suspect]
     Active Substance: OMALIZUMAB
     Indication: Asthma
     Route: 058
  21. OMALIZUMAB [Suspect]
     Active Substance: OMALIZUMAB
     Route: 058
  22. OMALIZUMAB [Suspect]
     Active Substance: OMALIZUMAB
     Route: 058
  23. OMALIZUMAB [Suspect]
     Active Substance: OMALIZUMAB
     Route: 065
  24. OMALIZUMAB [Suspect]
     Active Substance: OMALIZUMAB
     Route: 058
  25. OMALIZUMAB [Suspect]
     Active Substance: OMALIZUMAB
     Route: 058
  26. OMALIZUMAB [Suspect]
     Active Substance: OMALIZUMAB
     Route: 057
  27. OMALIZUMAB [Suspect]
     Active Substance: OMALIZUMAB
     Route: 057
  28. OMALIZUMAB [Suspect]
     Active Substance: OMALIZUMAB
     Route: 058
  29. OMALIZUMAB [Suspect]
     Active Substance: OMALIZUMAB
     Route: 058
  30. OMALIZUMAB [Suspect]
     Active Substance: OMALIZUMAB
     Route: 058
  31. OMALIZUMAB [Suspect]
     Active Substance: OMALIZUMAB
     Route: 058
  32. NAPROXEN [Concomitant]
     Active Substance: NAPROXEN
     Indication: Product used for unknown indication
     Dosage: NAPROXEN, NOT SPECIFIED
  33. NAPROXEN [Concomitant]
     Active Substance: NAPROXEN
     Dosage: NAPROXEN SODIUM
  34. NASONEX [Concomitant]
     Active Substance: MOMETASONE FUROATE
     Indication: Hypersensitivity
     Dosage: SPRAY, METERED DOSE
     Route: 006
  35. NASONEX [Concomitant]
     Active Substance: MOMETASONE FUROATE
     Dosage: SPRAY, METERED DOSE
     Route: 006
  36. NASONEX [Concomitant]
     Active Substance: MOMETASONE FUROATE
     Route: 006
  37. NASONEX [Concomitant]
     Active Substance: MOMETASONE FUROATE
     Route: 006
  38. NASONEX [Concomitant]
     Active Substance: MOMETASONE FUROATE
     Dosage: SPRAY, METERED DOSE
     Route: 006
  39. PREDNISONE [Concomitant]
     Active Substance: PREDNISONE
     Indication: Asthma
  40. PREDNISONE [Concomitant]
     Active Substance: PREDNISONE
     Route: 048
  41. PREDNISONE [Concomitant]
     Active Substance: PREDNISONE
  42. PREDNISONE [Concomitant]
     Active Substance: PREDNISONE
  43. PREDNISONE [Concomitant]
     Active Substance: PREDNISONE
     Route: 048
  44. PREDNISONE [Concomitant]
     Active Substance: PREDNISONE
  45. PREDNISONE [Concomitant]
     Active Substance: PREDNISONE
     Route: 048
  46. PREDNISONE [Concomitant]
     Active Substance: PREDNISONE
  47. PREDNISONE [Concomitant]
     Active Substance: PREDNISONE
     Route: 065
  48. SINGULAIR [Concomitant]
     Active Substance: MONTELUKAST SODIUM
     Indication: Asthma
     Dosage: NOT SPECIFIED
     Route: 048
  49. SINGULAIR [Concomitant]
     Active Substance: MONTELUKAST SODIUM
     Dosage: NOT SPECIFIED
     Route: 048
  50. SINGULAIR [Concomitant]
     Active Substance: MONTELUKAST SODIUM
     Route: 065
  51. SPIRIVA [Concomitant]
     Active Substance: TIOTROPIUM BROMIDE MONOHYDRATE
     Indication: Asthma
     Route: 065
  52. SPIRIVA [Concomitant]
     Active Substance: TIOTROPIUM BROMIDE MONOHYDRATE
     Route: 048
  53. SPIRIVA [Concomitant]
     Active Substance: TIOTROPIUM BROMIDE MONOHYDRATE
     Route: 048
  54. SPIRIVA [Concomitant]
     Active Substance: TIOTROPIUM BROMIDE MONOHYDRATE
     Route: 065
  55. TRAZODONE [Concomitant]
     Active Substance: TRAZODONE HYDROCHLORIDE
     Indication: Asthma
     Route: 048
  56. TRAZODONE [Concomitant]
     Active Substance: TRAZODONE HYDROCHLORIDE
     Indication: Product used for unknown indication
     Route: 048
  57. TRAZODONE [Concomitant]
     Active Substance: TRAZODONE HYDROCHLORIDE
     Route: 048
  58. TRAZODONE [Concomitant]
     Active Substance: TRAZODONE HYDROCHLORIDE
     Route: 065
  59. TRAZODONE [Concomitant]
     Active Substance: TRAZODONE HYDROCHLORIDE
     Route: 048
  60. TYLENOL [Concomitant]
     Active Substance: ACETAMINOPHEN
     Indication: Product used for unknown indication
     Route: 065
  61. VENTOLIN [Concomitant]
     Active Substance: ALBUTEROL SULFATE
     Indication: Asthma
  62. VENTOLIN [Concomitant]
     Active Substance: ALBUTEROL SULFATE
  63. ALBUTEROL [Concomitant]
     Active Substance: ALBUTEROL
     Indication: Asthma
     Dosage: SALBUTAMOL
  64. ALBUTEROL [Concomitant]
     Active Substance: ALBUTEROL
     Dosage: SALBUTAMOL SULFATE
  65. TIOTROPIUM BROMIDE [Concomitant]
     Active Substance: TIOTROPIUM BROMIDE
     Indication: Asthma
     Dosage: TIOTROPIUM BROMIDE
  66. TIOTROPIUM BROMIDE [Concomitant]
     Active Substance: TIOTROPIUM BROMIDE
     Dosage: TIOTROPIUM BROMIDE MONOHYDRATE
  67. TIOTROPIUM BROMIDE [Concomitant]
     Active Substance: TIOTROPIUM BROMIDE
     Dosage: TIOTROPIUM BROMIDE MONOHYDRATE
     Route: 048
  68. ADVAIR HFA [Concomitant]
     Active Substance: FLUTICASONE PROPIONATE\SALMETEROL XINAFOATE
     Indication: Asthma
     Route: 065
  69. ADVAIR HFA [Concomitant]
     Active Substance: FLUTICASONE PROPIONATE\SALMETEROL XINAFOATE
     Indication: Product used for unknown indication
     Dosage: NOT SPECIFIED
     Route: 065
  70. SALMETEROL XINAFOATE [Concomitant]
     Active Substance: SALMETEROL XINAFOATE
     Indication: Product used for unknown indication
     Route: 065
  71. SALMETEROL XINAFOATE [Concomitant]
     Active Substance: SALMETEROL XINAFOATE
     Indication: Asthma
     Route: 065
  72. ACETAMINOPHEN [Concomitant]
     Active Substance: ACETAMINOPHEN
     Indication: Product used for unknown indication

REACTIONS (7)
  - Productive cough [Not Recovered/Not Resolved]
  - Sputum discoloured [Not Recovered/Not Resolved]
  - Pneumonia [Not Recovered/Not Resolved]
  - Breast cancer [Not Recovered/Not Resolved]
  - Dyspnoea [Not Recovered/Not Resolved]
  - Headache [Not Recovered/Not Resolved]
  - Drug ineffective [Not Recovered/Not Resolved]
